FAERS Safety Report 12498241 (Version 3)
Quarter: 2016Q3

REPORT INFORMATION
  Report Type: Spontaneous
  Country: NL (occurrence: NL)
  Receive Date: 20160627
  Receipt Date: 20160728
  Transmission Date: 20161109
  Serious: Yes (Hospitalization)
  Sender: FDA-Public Use
  Company Number: NL-ROCHE-1783002

PATIENT
  Age: 52 Year
  Sex: Female

DRUGS (4)
  1. KADCYLA [Suspect]
     Active Substance: ADO-TRASTUZUMAB EMTANSINE
     Dosage: TRASTUZUMAB EMTANSINE 100 MG (N1020) (2X) AND TRASTUZUMAB EMTANSINE 160 MG (N1006)
     Route: 042
     Dates: start: 20160114
  2. KADCYLA [Suspect]
     Active Substance: ADO-TRASTUZUMAB EMTANSINE
     Dosage: TRASTUZUMAB EMTANSINE 100 MG (N1020) (2X) AND TRASTUZUMAB EMTANSINE 160 MG (N1018).
     Route: 042
     Dates: start: 20160223, end: 20160223
  3. KADCYLA [Suspect]
     Active Substance: ADO-TRASTUZUMAB EMTANSINE
     Indication: BREAST CANCER METASTATIC
     Route: 042
     Dates: start: 20160112
  4. KADCYLA [Suspect]
     Active Substance: ADO-TRASTUZUMAB EMTANSINE
     Dosage: TRASTUZUMAB EMTANSINE 100 MG (N1020) (2X) AND TRASTUZUMAB EMTANSINE 160 MG (N1018).
     Route: 042
     Dates: start: 20160202

REACTIONS (3)
  - Disease progression [Recovered/Resolved with Sequelae]
  - Alanine aminotransferase increased [Recovered/Resolved with Sequelae]
  - Drug ineffective [Unknown]

NARRATIVE: CASE EVENT DATE: 20160223
